FAERS Safety Report 9375112 (Version 1)
Quarter: 2013Q2

REPORT INFORMATION
  Report Type: Spontaneous
  Country: DE (occurrence: DE)
  Receive Date: 20130628
  Receipt Date: 20130628
  Transmission Date: 20140414
  Serious: Yes (Other)
  Sender: FDA-Public Use
  Company Number: DE-JNJFOC-20130611427

PATIENT
  Sex: 0

DRUGS (8)
  1. REOPRO [Suspect]
     Indication: CORONARY ANGIOPLASTY
     Dosage: INTRAVENOUS BOLUS
     Route: 042
  2. REOPRO [Suspect]
     Indication: CORONARY ANGIOPLASTY
     Dosage: INTRAVENOUS INFUSION
     Route: 042
  3. ASPIRIN [Concomitant]
     Indication: MYOCARDIAL INFARCTION
     Route: 042
  4. HEPARIN [Concomitant]
     Indication: MYOCARDIAL INFARCTION
     Dosage: 7U/KG/H
     Route: 042
  5. HEPARIN [Concomitant]
     Indication: MYOCARDIAL INFARCTION
     Dosage: 7U/KG/H
     Route: 042
  6. CLOPIDOGREL [Concomitant]
     Indication: PERCUTANEOUS CORONARY INTERVENTION
     Route: 065
  7. NITROGLYCERINE [Concomitant]
     Indication: ANGIOPLASTY
     Route: 022
  8. ASPIRIN [Concomitant]
     Indication: PERCUTANEOUS CORONARY INTERVENTION
     Route: 065

REACTIONS (1)
  - Duodenal ulcer haemorrhage [Unknown]
